FAERS Safety Report 15421499 (Version 9)
Quarter: 2019Q2

REPORT INFORMATION
  Report Type: Report from Study
  Country: US (occurrence: US)
  Receive Date: 20180924
  Receipt Date: 20190617
  Transmission Date: 20190711
  Serious: Yes (Hospitalization)
  Sender: FDA-Public Use
  Company Number: US-ACTELION-A-NJ2016-140401

PATIENT
  Age: 56 Year
  Sex: Female
  Weight: 73.92 kg

DRUGS (5)
  1. OPSUMIT [Suspect]
     Active Substance: MACITENTAN
     Indication: PULMONARY HYPERTENSION
     Dosage: 10 MG, QD
     Route: 048
     Dates: start: 20160701
  2. OPSUMIT [Suspect]
     Active Substance: MACITENTAN
     Dosage: UNK
     Route: 048
  3. AMLODIPINE [Concomitant]
     Active Substance: AMLODIPINE BESYLATE
  4. ADEMPAS [Concomitant]
     Active Substance: RIOCIGUAT
  5. OPSUMIT [Suspect]
     Active Substance: MACITENTAN
     Dosage: 10 MG, QD
     Route: 048

REACTIONS (24)
  - Joint swelling [Unknown]
  - Sleep disorder [Unknown]
  - Nasal inflammation [Unknown]
  - Oedema peripheral [Unknown]
  - Oropharyngeal pain [Unknown]
  - Pulmonary congestion [Unknown]
  - Bronchitis [Unknown]
  - Malaise [Unknown]
  - Nasal congestion [Unknown]
  - Cough [Unknown]
  - Back pain [Unknown]
  - Dyspepsia [Unknown]
  - Dysphagia [Not Recovered/Not Resolved]
  - Alopecia [Unknown]
  - Hot flush [Unknown]
  - Sinus pain [Unknown]
  - Onychoclasis [Unknown]
  - Immune system disorder [Unknown]
  - Arthralgia [Unknown]
  - Sinus congestion [Unknown]
  - Pneumonia [Unknown]
  - Pain [Unknown]
  - Fluid retention [Unknown]
  - Menopause [Unknown]

NARRATIVE: CASE EVENT DATE: 20161108
